FAERS Safety Report 7612764-4 (Version None)
Quarter: 2011Q3

REPORT INFORMATION
  Report Type: 
  Country: None (occurrence: None)
  Receive Date: 20110708
  Receipt Date: 20110628
  Transmission Date: 20111222
  Serious: Yes (Hospitalization)
  Sender: FDA-Public Use
  Company Number: 2011SP028926

PATIENT
  Age: 71 Year
  Sex: Female

DRUGS (12)
  1. ASCORBIC ACID [Concomitant]
  2. TOCO [Concomitant]
  3. LANSOPRAZOLE [Concomitant]
  4. BOCEPREVIR (SCH-503034) [Suspect]
     Indication: HEPATITIS C
     Dosage: 800 MG, TID;
     Dates: start: 20110509
  5. VIRAFERONPEG [Suspect]
     Indication: HEPATITIS C
     Dosage: 100 MCG, QW. SC
     Route: 058
     Dates: start: 20110509
  6. FOLIC ACID [Concomitant]
  7. IRBESARTAN + HYDROCHLOROTHIAZIDE [Concomitant]
  8. ESCITALOPRAM OXALATE [Concomitant]
  9. ACETAMINOPHEN [Concomitant]
  10. REBETOL [Suspect]
     Indication: HEPATITIS C
     Dosage: 200 MG, BID;
     Dates: start: 20110509
  11. LERCANIDIPINE [Concomitant]
  12. NEBIVOLOL HCL [Concomitant]

REACTIONS (9)
  - PAIN [None]
  - RESPIRATORY RATE INCREASED [None]
  - PLATELET COUNT DECREASED [None]
  - CARDIAC MURMUR [None]
  - BLOOD PRESSURE SYSTOLIC INCREASED [None]
  - GENERAL PHYSICAL HEALTH DETERIORATION [None]
  - NAUSEA [None]
  - VOMITING [None]
  - DIARRHOEA [None]
